FAERS Safety Report 7774514-0 (Version None)
Quarter: 2011Q3

REPORT INFORMATION
  Report Type: 
  Country: None (occurrence: None)
  Receive Date: 20110923
  Receipt Date: 20110923
  Transmission Date: 20111222
  Serious: No
  Sender: FDA-Public Use
  Company Number: None

PATIENT
  Age: 60 Year
  Sex: Female
  Weight: 59.874 kg

DRUGS (1)
  1. LIPITOR [Suspect]
     Indication: MYOCARDIAL INFARCTION
     Dosage: 20MG
     Dates: start: 20070801, end: 20110530

REACTIONS (4)
  - CONTUSION [None]
  - MUSCLE SPASMS [None]
  - AMNESIA [None]
  - GAIT DISTURBANCE [None]
